FAERS Safety Report 4661874-2 (Version None)
Quarter: 2005Q2

REPORT INFORMATION
  Report Type: 
  Country: None (occurrence: None)
  Receive Date: 20050513
  Receipt Date: 20050404
  Transmission Date: 20051028
  Serious: Yes (Life-Threatening, Hospitalization, Disabling)
  Sender: FDA-Public Use
  Company Number: BE-MERCK-0504BEL00007

PATIENT
  Age: 80 Year
  Sex: Female

DRUGS (3)
  1. ZOCOR [Suspect]
     Indication: HYPERCHOLESTEROLAEMIA
     Route: 048
  2. PHENPROCOUMON [Concomitant]
     Indication: TRANSMYOCARDIAL REVASCULARISATION
     Route: 048
     Dates: start: 20011124
  3. METOPROLOL TARTRATE [Concomitant]
     Indication: PROPHYLAXIS
     Route: 048
     Dates: start: 20020112

REACTIONS (1)
  - CEREBROVASCULAR ACCIDENT [None]
